FAERS Safety Report 5827782-6 (Version None)
Quarter: 2008Q3

REPORT INFORMATION
  Report Type: 
  Country: None (occurrence: None)
  Receive Date: 20080730
  Receipt Date: 20080718
  Transmission Date: 20090109
  Serious: Yes (Hospitalization, Other)
  Sender: FDA-Public Use
  Company Number: US-GENENTECH-263131

PATIENT
  Sex: Female

DRUGS (17)
  1. RAPTIVA [Suspect]
     Indication: PSORIASIS
     Dosage: 0.95 MG, 1/WEEK
     Route: 058
     Dates: start: 20071217
  2. LORATADINE [Concomitant]
     Indication: HYPERSENSITIVITY
     Dosage: 10 MG, UNK
  3. BISACODYL [Concomitant]
     Indication: CONSTIPATION
     Dosage: UNK
  4. LOVASTATIN [Concomitant]
     Indication: BLOOD CHOLESTEROL
     Dosage: 20 MG, UNK
  5. METOCLOPRAMIDE [Concomitant]
     Indication: DRUG USE FOR UNKNOWN INDICATION
     Dosage: 10 MG, UNK
  6. HYDROXYZINE [Concomitant]
     Indication: DRUG USE FOR UNKNOWN INDICATION
     Dosage: 25 MG, BID
  7. PREVACID [Concomitant]
     Indication: GASTROOESOPHAGEAL REFLUX DISEASE
     Dosage: 5 ML, QD
  8. HYDROCODONE BITARTRATE [Concomitant]
     Indication: PAIN
     Dosage: 7.5 MG, PRN
  9. CYANOCOBALAMIN [Concomitant]
     Indication: VITAMIN B12 DEFICIENCY
     Dosage: 1000 A?G, 1/MONTH
  10. BEANO [Concomitant]
     Indication: FLATULENCE
     Dosage: UNK
  11. AEROBID [Concomitant]
     Indication: ASTHMA
     Dosage: 2 PUFF, QD
  12. ALBUTEROL [Concomitant]
     Indication: ASTHMA
     Dosage: 2 PUFF, QD
  13. VISINE EYE DROPS [Concomitant]
     Indication: DRUG USE FOR UNKNOWN INDICATION
  14. PATANOL [Concomitant]
     Indication: DRUG USE FOR UNKNOWN INDICATION
     Dosage: 1 GTT, PRN
  15. M.V.I. [Concomitant]
     Indication: DRUG USE FOR UNKNOWN INDICATION
  16. ZINC [Concomitant]
     Indication: DRUG USE FOR UNKNOWN INDICATION
     Dosage: 50 MG, UNK
  17. CALCIUM [Concomitant]
     Indication: DRUG USE FOR UNKNOWN INDICATION
     Dosage: 500 MG, BID

REACTIONS (1)
  - NEUROLOGICAL SYMPTOM [None]
